FAERS Safety Report 21896833 (Version 3)
Quarter: 2023Q2

REPORT INFORMATION
  Report Type: Report from Study
  Country: US (occurrence: US)
  Receive Date: 20230123
  Receipt Date: 20230610
  Transmission Date: 20230722
  Serious: Yes (Hospitalization)
  Sender: FDA-Public Use
  Company Number: US-ARGENX-2022-ARGX-US002038

PATIENT
  Age: 71 Year
  Sex: Male
  Weight: 162 kg

DRUGS (2)
  1. VYVGART [Suspect]
     Active Substance: EFGARTIGIMOD ALFA-FCAB
     Indication: Myasthenia gravis
     Dosage: 10 MG/KG
     Dates: start: 20220918
  2. VYVGART [Suspect]
     Active Substance: EFGARTIGIMOD ALFA-FCAB
     Dosage: 10 MG/KG
     Route: 042
     Dates: start: 20230416

REACTIONS (11)
  - Hospitalisation [Unknown]
  - Influenza [Recovered/Resolved]
  - Urinary tract infection [Unknown]
  - Fall [Recovered/Resolved]
  - Rib fracture [Unknown]
  - Peripheral swelling [Unknown]
  - Gastrointestinal disorder [Unknown]
  - Decreased appetite [Unknown]
  - Infusion related reaction [Recovered/Resolved]
  - Dyspnoea [Recovered/Resolved]
  - Nausea [Recovered/Resolved]

NARRATIVE: CASE EVENT DATE: 20220918
